FAERS Safety Report 15561255 (Version 1)
Quarter: 2018Q4

REPORT INFORMATION
  Report Type: Spontaneous
  Country: FI (occurrence: FI)
  Receive Date: 20181029
  Receipt Date: 20181029
  Transmission Date: 20190205
  Serious: Yes (Other)
  Sender: FDA-Public Use
  Company Number: FI-GLAXOSMITHKLINE-FI2018GSK190456

PATIENT
  Sex: Female

DRUGS (4)
  1. SERETIDE [Suspect]
     Active Substance: FLUTICASONE PROPIONATE\SALMETEROL XINAFOATE
     Dosage: UNK,DOUBLE DOSE
  2. FLIXOTIDE EVOHALER [Suspect]
     Active Substance: FLUTICASONE PROPIONATE
     Indication: ASTHMA
     Dosage: 50 UG, BID,2 SPRAY
     Dates: start: 201605
  3. SERETIDE [Suspect]
     Active Substance: FLUTICASONE PROPIONATE\SALMETEROL XINAFOATE
     Indication: ASTHMA
     Dosage: 1 DF, BID
     Dates: start: 201709
  4. FLIXOTIDE EVOHALER [Suspect]
     Active Substance: FLUTICASONE PROPIONATE
     Dosage: 125 UG, BID

REACTIONS (6)
  - Hunger [Unknown]
  - Adrenal insufficiency [Not Recovered/Not Resolved]
  - Overdose [Unknown]
  - Cough [Unknown]
  - Product prescribing issue [Unknown]
  - Thirst [Unknown]

NARRATIVE: CASE EVENT DATE: 2018
